FAERS Safety Report 9620406 (Version 1)
Quarter: 2013Q4

REPORT INFORMATION
  Report Type: Spontaneous
  Country: BR (occurrence: US)
  Receive Date: 20131015
  Receipt Date: 20131015
  Transmission Date: 20140711
  Serious: No
  Sender: FDA-Public Use
  Company Number: -SAAVPROD-BMS17120676

PATIENT
  Age: 59 Year
  Sex: Male
  Weight: 92 kg

DRUGS (3)
  1. APROZIDE [Suspect]
     Indication: CARDIAC DISORDER
     Dosage: APROZIDE150MG TABS:2007-ONG(5 YRS AGO)?APROZIDE300MG TABS:2012-ONG(30 DAYS AGO).HALF TABS
     Route: 048
     Dates: start: 2007
  2. SELOZOK [Concomitant]
     Indication: CARDIAC DISORDER
     Route: 048
     Dates: start: 2007
  3. GLIFAGE [Concomitant]
     Indication: DIABETES MELLITUS
     Dosage: AFTER MEALS
     Route: 048
     Dates: start: 2007

REACTIONS (3)
  - Neck pain [Unknown]
  - Vision blurred [Unknown]
  - Drug ineffective [Unknown]
